FAERS Safety Report 10204966 (Version 1)
Quarter: 2014Q2

REPORT INFORMATION
  Report Type: Spontaneous
  Country: US (occurrence: US)
  Receive Date: 20140529
  Receipt Date: 20140529
  Transmission Date: 20141212
  Serious: Yes (Other)
  Sender: FDA-Public Use
  Company Number: CHPA2014US007221

PATIENT
  Age: 76 Year
  Sex: Male

DRUGS (1)
  1. PERDIEM OVERNIGHT RELIEF PILLS [Suspect]
     Indication: CONSTIPATION
     Dosage: UNK
     Route: 048
     Dates: start: 2013

REACTIONS (1)
  - Polyp [Recovered/Resolved]
